FAERS Safety Report 16685138 (Version 1)
Quarter: 2019Q3

REPORT INFORMATION
  Report Type: Spontaneous
  Country: GB (occurrence: GB)
  Receive Date: 20190808
  Receipt Date: 20190808
  Transmission Date: 20191004
  Serious: Yes (Disabling)
  Sender: FDA-Public Use
  Company Number: GB-TEVA-2019-GB-1089550

PATIENT
  Age: 76 Year
  Sex: Female
  Weight: 78 kg

DRUGS (14)
  1. ZEMTARD MR [Concomitant]
     Dates: start: 20181017
  2. HYDROXYCHLOROQUINE SULFATE. [Concomitant]
     Active Substance: HYDROXYCHLOROQUINE SULFATE
     Dates: start: 20190103
  3. PARACETAMOL [Concomitant]
     Active Substance: ACETAMINOPHEN
     Indication: PAIN
     Dosage: MAXIMUM 8.
     Dates: start: 20100603
  4. OMEPRAZOLE. [Concomitant]
     Active Substance: OMEPRAZOLE
     Indication: HYPERCHLORHYDRIA
     Dates: start: 20190416
  5. MEBEVERINE HYDROCHLORIDE [Concomitant]
     Active Substance: MEBEVERINE HYDROCHLORIDE
     Dates: start: 20181017
  6. CHLORAMPHENICOL [Concomitant]
     Active Substance: CHLORAMPHENICOL
     Dosage: APPLY TO THE AFFECTED EYE(S).
     Route: 050
     Dates: start: 20190528
  7. CETIRIZINE [Concomitant]
     Active Substance: CETIRIZINE HYDROCHLORIDE
     Dates: start: 20181017
  8. HYPROMELLOSE [Concomitant]
     Active Substance: HYPROMELLOSES
     Dates: start: 20190103
  9. LISINOPRIL. [Concomitant]
     Active Substance: LISINOPRIL
     Dates: start: 20181017
  10. GLANDOSANE [Concomitant]
     Active Substance: CALCIUM\CARBOXYMETHYLCELLULOSE\DEVICE\MAGNESIUM\POTASSIUM\SODIUM CL\SORBITOL
     Indication: DRY MOUTH
     Dosage: USE AS DIRECTED
     Dates: start: 20181017
  11. MOVICOL [Concomitant]
     Active Substance: POLYETHYLENE GLYCOL 3350\POTASSIUM CHLORIDE\SODIUM BICARBONATE\SODIUM CHLORIDE
     Dosage: USE AS DIRECTED.
     Dates: start: 20180629
  12. DOXAZOSIN [Suspect]
     Active Substance: DOXAZOSIN MESYLATE
     Dates: start: 20190301
  13. LEVOTHYROXINE. [Concomitant]
     Active Substance: LEVOTHYROXINE
     Dosage: EACH MORNING.
     Dates: start: 20181017
  14. SIMVASTATIN. [Concomitant]
     Active Substance: SIMVASTATIN
     Dosage: AT NIGHT.
     Dates: start: 20181017

REACTIONS (2)
  - Malaise [Unknown]
  - Diarrhoea [Recovered/Resolved]
